FAERS Safety Report 7028149-8 (Version None)
Quarter: 2010Q4

REPORT INFORMATION
  Report Type: 
  Country: None (occurrence: None)
  Receive Date: 20101005
  Receipt Date: 20101001
  Transmission Date: 20110411
  Serious: Yes (Hospitalization)
  Sender: FDA-Public Use
  Company Number: IT-BRISTOL-MYERS SQUIBB COMPANY-15315369

PATIENT
  Age: 87 Year
  Sex: Female

DRUGS (7)
  1. FOSIPRES [Suspect]
     Dosage: SUSPENDED ON 24-JUN-2010
     Route: 048
     Dates: start: 20100101
  2. LASIX [Suspect]
     Indication: CARDIAC DISORDER
     Dosage: LASIX  25 MG ORAL TABS OF 4 POSOLOGIC UNITS/DAY
     Route: 048
     Dates: start: 20090101, end: 20100624
  3. ZYLORIC [Suspect]
     Indication: HYPERURICAEMIA
     Route: 048
     Dates: start: 20090101, end: 20100624
  4. ALTIAZEM [Concomitant]
     Route: 048
  5. MONOCINQUE [Concomitant]
     Route: 048
  6. ASPIRIN [Concomitant]
     Route: 048
  7. CYTOTEC [Concomitant]

REACTIONS (2)
  - HYPERKALAEMIA [None]
  - RENAL FAILURE ACUTE [None]
